FAERS Safety Report 21916677 (Version 1)
Quarter: 2023Q1

REPORT INFORMATION
  Report Type: Spontaneous
  Country: US (occurrence: None)
  Receive Date: 20230126
  Receipt Date: 20230126
  Transmission Date: 20230418
  Serious: Yes (Hospitalization)
  Sender: FDA-Public Use
  Company Number: None

PATIENT
  Sex: Male
  Weight: 104.5 kg

DRUGS (3)
  1. BENDAMUSTINE HYDROCHLORIDE [Suspect]
     Active Substance: BENDAMUSTINE HYDROCHLORIDE
     Indication: Product used for unknown indication
     Dates: end: 20220829
  2. CYTARABINE [Suspect]
     Active Substance: CYTARABINE
     Dates: end: 20221004
  3. RITUXIMAB [Suspect]
     Active Substance: RITUXIMAB
     Indication: Product used for unknown indication
     Dates: end: 20221003

REACTIONS (5)
  - Thrombocytopenia [None]
  - Transfusion reaction [None]
  - Transmission of an infectious agent via product [None]
  - Bacterial infection [None]
  - Febrile neutropenia [None]

NARRATIVE: CASE EVENT DATE: 20221010
